FAERS Safety Report 21486768 (Version 1)
Quarter: 2022Q4

REPORT INFORMATION
  Report Type: Spontaneous
  Country: CN (occurrence: None)
  Receive Date: 20221020
  Receipt Date: 20221020
  Transmission Date: 20230113
  Serious: Yes (Other)
  Sender: FDA-Public Use
  Company Number: 2022A347023

PATIENT
  Age: 25202 Day
  Sex: Female
  Weight: 42 kg

DRUGS (2)
  1. DAPAGLIFLOZIN [Suspect]
     Active Substance: DAPAGLIFLOZIN
     Indication: Type 2 diabetes mellitus
     Route: 048
     Dates: start: 20220909, end: 20220915
  2. EPALRESTAT [Concomitant]
     Active Substance: EPALRESTAT
     Route: 048
     Dates: start: 20220909

REACTIONS (2)
  - Quadriplegia [Recovering/Resolving]
  - Hypoaesthesia [Recovered/Resolved]

NARRATIVE: CASE EVENT DATE: 20220911
